FAERS Safety Report 16677213 (Version 1)
Quarter: 2019Q3

REPORT INFORMATION
  Report Type: Spontaneous
  Country: DK (occurrence: DK)
  Receive Date: 20190807
  Receipt Date: 20190807
  Transmission Date: 20191004
  Serious: Yes (Other)
  Sender: FDA-Public Use
  Company Number: DK-ROCHE-2366656

PATIENT
  Age: 57 Year
  Sex: Female

DRUGS (4)
  1. DIVIGEL [Concomitant]
     Active Substance: ESTRADIOL
     Indication: MUCOSAL DRYNESS
     Dosage: STYRKE: 0.5 MG/DOSIS.
     Route: 003
  2. PROCTOSEDYL [CINCHOCAINE HYDROCHLORIDE;ESCULOSIDE;FRAMYCETIN SULFATE;H [Concomitant]
     Indication: HAEMORRHOIDS
     Route: 054
     Dates: start: 20190627
  3. BETMIGA [Suspect]
     Active Substance: MIRABEGRON
     Indication: HYPERTONIC BLADDER
     Route: 048
     Dates: start: 20190605, end: 20190701
  4. OCREVUS [Suspect]
     Active Substance: OCRELIZUMAB
     Indication: MULTIPLE SCLEROSIS
     Route: 048
     Dates: start: 20190620, end: 20190701

REACTIONS (2)
  - Alanine aminotransferase increased [Not Recovered/Not Resolved]
  - Autoimmune hepatitis [Not Recovered/Not Resolved]
